FAERS Safety Report 9056004 (Version 2)
Quarter: 2013Q4

REPORT INFORMATION
  Report Type: Spontaneous
  Country: GB (occurrence: GB)
  Receive Date: 20130205
  Receipt Date: 20131008
  Transmission Date: 20140711
  Serious: Yes (Disabling)
  Sender: FDA-Public Use
  Company Number: GB-RANBAXY-2013R1-64790

PATIENT
  Age: 42 Year
  Sex: Male

DRUGS (9)
  1. CIPROFLOXACIN [Suspect]
     Indication: PILONIDAL CYST
     Dosage: 500 MG, SINGLE
     Route: 048
     Dates: start: 20130108, end: 20130108
  2. METRONIDAZOLE [Suspect]
     Indication: PILONIDAL CYST
     Dosage: 400 MG, TID
     Route: 048
     Dates: start: 20130108, end: 20130109
  3. CO-CODAMOL [Concomitant]
     Indication: PAIN
     Dosage: 2 DF, QID
     Route: 048
     Dates: start: 20130108
  4. ERYTHROMYCIN [Concomitant]
     Indication: PILONIDAL CYST
     Dosage: 500 MG, QID
     Route: 048
     Dates: start: 20121220, end: 20121227
  5. IBUPROFEN [Concomitant]
     Indication: PAIN
     Dosage: UNK
     Route: 048
     Dates: start: 20130109, end: 201301
  6. MORPHINE SULPHATE [Concomitant]
     Indication: PAIN
     Dosage: UNK
     Route: 040
     Dates: start: 20130109, end: 20130109
  7. MORPHINE SULPHATE [Concomitant]
     Indication: PAIN
     Dosage: UNK
     Route: 048
  8. PARACETAMOL [Concomitant]
     Indication: PRODUCT USED FOR UNKNOWN INDICATION
     Dosage: UNK
     Route: 048
     Dates: start: 20130109, end: 20130109
  9. TRAMADOL [Concomitant]
     Indication: PAIN
     Dosage: UNK
     Route: 048
     Dates: start: 20130109, end: 20130109

REACTIONS (2)
  - Deafness bilateral [Recovered/Resolved]
  - Vertigo [Not Recovered/Not Resolved]
